FAERS Safety Report 5214184-9 (Version None)
Quarter: 2007Q1

REPORT INFORMATION
  Report Type: 
  Country: None (occurrence: None)
  Receive Date: 20070116
  Receipt Date: 20070104
  Transmission Date: 20070707
  Serious: Yes (Other)
  Sender: FDA-Public Use
  Company Number: CHNY2006JP03345

PATIENT
  Age: 77 Year
  Sex: Female

DRUGS (1)
  1. NICOTINE [Suspect]
     Indication: SMOKING CESSATION THERAPY
     Dosage: 21 + 14 MG, QD, TRANSDERMAL - SEE IMAGE
     Route: 062

REACTIONS (2)
  - STOMACH DISCOMFORT [None]
  - TRANSAMINASES INCREASED [None]
